FAERS Safety Report 6903685-0 (Version None)
Quarter: 2010Q3

REPORT INFORMATION
  Report Type: 
  Country: None (occurrence: None)
  Receive Date: 20100803
  Receipt Date: 20081106
  Transmission Date: 20110219
  Serious: No
  Sender: FDA-Public Use
  Company Number: US-PFIZER INC-2008066778

PATIENT
  Sex: Female
  Weight: 77.11 kg

DRUGS (12)
  1. LYRICA [Suspect]
     Indication: FIBROMYALGIA
     Route: 048
     Dates: start: 20080811, end: 20080814
  2. LYRICA [Suspect]
     Indication: BACK DISORDER
  3. LYRICA [Suspect]
     Indication: LUMBAR RADICULOPATHY
  4. TIAZAC [Concomitant]
  5. VALSARTAN [Concomitant]
  6. COUMADIN [Concomitant]
  7. HYDROCHLOROTHIAZIDE [Concomitant]
  8. DILTIAZEM [Concomitant]
  9. ZETIA [Concomitant]
  10. METOPROLOL [Concomitant]
  11. NAPROSYN [Concomitant]
  12. LASIX [Concomitant]

REACTIONS (7)
  - BALANCE DISORDER [None]
  - DIZZINESS [None]
  - GAIT DISTURBANCE [None]
  - NAUSEA [None]
  - OEDEMA PERIPHERAL [None]
  - SOMNOLENCE [None]
  - VOMITING [None]
